FAERS Safety Report 12329405 (Version 3)
Quarter: 2016Q2

REPORT INFORMATION
  Report Type: Spontaneous
  Country: US (occurrence: US)
  Receive Date: 20160503
  Receipt Date: 20160512
  Transmission Date: 20160815
  Serious: Yes (Hospitalization)
  Sender: FDA-Public Use
  Company Number: US-ACTELION-A-US2016-134887

PATIENT
  Age: 51 Year
  Sex: Female

DRUGS (3)
  1. RIOCIGUAT [Concomitant]
     Active Substance: RIOCIGUAT
  2. LETAIRIS [Concomitant]
     Active Substance: AMBRISENTAN
  3. VELETRI [Suspect]
     Active Substance: EPOPROSTENOL
     Indication: PULMONARY ARTERIAL HYPERTENSION
     Dosage: 3.4 NG/KG, PER MIN
     Route: 042
     Dates: start: 20160304

REACTIONS (10)
  - Infection [Unknown]
  - Device alarm issue [Recovered/Resolved]
  - Fear [Unknown]
  - Pyrexia [Unknown]
  - Device related infection [Unknown]
  - Lethargy [Unknown]
  - Malaise [Unknown]
  - Anxiety [Unknown]
  - Heart rate increased [Unknown]
  - Dizziness [Unknown]
